FAERS Safety Report 8257524-9 (Version None)
Quarter: 2012Q2

REPORT INFORMATION
  Report Type: 
  Country: None (occurrence: None)
  Receive Date: 20120403
  Receipt Date: 20120319
  Transmission Date: 20120825
  Serious: Yes (Hospitalization, Other)
  Sender: FDA-Public Use
  Company Number: TR-WATSON-2012-05230

PATIENT
  Age: 32 Year
  Sex: Female

DRUGS (2)
  1. OXCARBAZEPINE [Suspect]
     Indication: BRAIN OPERATION
     Dosage: 300 MG, UNK
     Route: 065
  2. TOPIRAMATE [Suspect]
     Indication: BRAIN OPERATION
     Dosage: 100 MG, UNK
     Route: 065

REACTIONS (2)
  - OLIGOHYDRAMNIOS [None]
  - MATERNAL EXPOSURE DURING PREGNANCY [None]
